FAERS Safety Report 10155680 (Version 1)
Quarter: 2014Q2

REPORT INFORMATION
  Report Type: Spontaneous
  Country: NL (occurrence: NL)
  Receive Date: 20140506
  Receipt Date: 20140506
  Transmission Date: 20141212
  Serious: Yes (Other)
  Sender: FDA-Public Use
  Company Number: NL-TEVA-479278ISR

PATIENT
  Age: 37 Year
  Sex: Female
  Weight: 67 kg

DRUGS (5)
  1. METHOTREXAAT TABLET 10MG [Suspect]
     Indication: RHEUMATIC DISORDER
     Dosage: ONCE A WEEK 2 PIECES
     Route: 048
     Dates: start: 20140327
  2. NAPROXEN TABLET 500MG [Interacting]
     Indication: RHEUMATIC DISORDER
     Dosage: 1000 MILLIGRAM DAILY; TWICE DAILY 1 PIECE
     Route: 048
     Dates: start: 20140124
  3. FOLIUMZUUR TABLET 5MG [Concomitant]
     Dosage: ONCE A WEEK 1 PIECE
     Route: 048
     Dates: start: 20140328
  4. OMEPRAZOL CAPSULE MSR 20MG [Concomitant]
     Dosage: ONCE DAILY 1 PIECE
     Route: 048
     Dates: start: 20130715
  5. MOMETASON NEUSSPRAY 50UG/DO [Concomitant]
     Dosage: ONCE DAILY 2 PIECES (SPRAYS)
     Route: 045
     Dates: start: 20130308

REACTIONS (2)
  - Deafness unilateral [Not Recovered/Not Resolved]
  - Drug interaction [Not Recovered/Not Resolved]
